FAERS Safety Report 24035607 (Version 1)
Quarter: 2024Q3

REPORT INFORMATION
  Report Type: Spontaneous
  Country: GB (occurrence: GB)
  Receive Date: 20240701
  Receipt Date: 20240701
  Transmission Date: 20241017
  Serious: Yes (Other)
  Sender: PFIZER
  Company Number: GB-MHRA-TPP26115319C14665784YC1719131531677

PATIENT
  Age: 77 Year
  Sex: Female
  Weight: 69 kg

DRUGS (10)
  1. PAXLOVID [Suspect]
     Active Substance: NIRMATRELVIR\RITONAVIR
     Indication: COVID-19 treatment
     Dosage: STANDARD DOSE. TAKE 300 MG NIRMATRELVIR (TWO 15...
     Dates: start: 20240621
  2. APIXABAN [Concomitant]
     Active Substance: APIXABAN
     Dosage: 1 DF, ALTERNATE DAY
     Dates: start: 20230704
  3. HYPROMELLOSES [Concomitant]
     Active Substance: HYPROMELLOSES
     Dosage: USE AS DIRECTED
     Dates: start: 20221230
  4. AMITRIPTYLINE HYDROCHLORIDE [Concomitant]
     Active Substance: AMITRIPTYLINE HYDROCHLORIDE
     Dosage: INCREASE TO TWO AT NIGHT AS NEEDED
     Dates: start: 20230206
  5. ASPIRIN [Concomitant]
     Active Substance: ASPIRIN
     Dosage: ONE TO BE TAKEN DAILY
     Dates: start: 20230206
  6. ATORVASTATIN [Concomitant]
     Active Substance: ATORVASTATIN
     Dosage: TAKE ONE DAILY
     Dates: start: 20230206
  7. OMEPRAZOLE [Concomitant]
     Active Substance: OMEPRAZOLE
     Dosage: TAKE TWO DAILY
     Dates: start: 20230206
  8. LEVOTHYROXINE [Concomitant]
     Active Substance: LEVOTHYROXINE\LEVOTHYROXINE SODIUM
     Dosage: EACH MORNING
     Dates: start: 20230315
  9. PREDNISOLONE [Concomitant]
     Active Substance: PREDNISOLONE
     Dosage: 6MG DAILY REDUCE AS PER HOSPITAL
     Dates: start: 20231107
  10. NITROGLYCERIN [Concomitant]
     Active Substance: NITROGLYCERIN
     Dosage: UNK, AS NEEDED
     Dates: start: 20231107

REACTIONS (1)
  - Swollen tongue [Recovered/Resolved]
